FAERS Safety Report 8404805-1 (Version None)
Quarter: 2012Q2

REPORT INFORMATION
  Report Type: 
  Country: None (occurrence: None)
  Receive Date: 20120601
  Receipt Date: 20120530
  Transmission Date: 20120825
  Serious: Yes (Hospitalization, Other)
  Sender: FDA-Public Use
  Company Number: US-MERCK-1205USA02181

PATIENT
  Age: 8 Year
  Sex: Male

DRUGS (3)
  1. SINGULAIR [Suspect]
     Route: 048
  2. FLUTICASONE [Concomitant]
     Route: 065
  3. SINGULAIR [Suspect]
     Indication: RHINITIS ALLERGIC
     Route: 048
     Dates: start: 20120412, end: 20120414

REACTIONS (2)
  - SUICIDAL IDEATION [None]
  - ABNORMAL BEHAVIOUR [None]
